FAERS Safety Report 8456889-2 (Version None)
Quarter: 2012Q2

REPORT INFORMATION
  Report Type: 
  Country: None (occurrence: None)
  Receive Date: 20120323
  Receipt Date: 20110915
  Transmission Date: 20120825
  Serious: Yes (Hospitalization)
  Sender: FDA-Public Use
  Company Number: 163-21880-11092055

PATIENT
  Age: 84 Year
  Sex: Male

DRUGS (4)
  1. REVLIMID [Suspect]
     Indication: MULTIPLE MYELOMA
     Dosage: 10 MG, FOR 21 DAYS, PO
     Route: 048
     Dates: start: 20091127
  2. CYTOXAN [Concomitant]
  3. PREDNISONE TAB [Concomitant]
  4. BACTRIM [Concomitant]

REACTIONS (2)
  - CATHETER SITE INFECTION [None]
  - TRANSIENT ISCHAEMIC ATTACK [None]
